FAERS Safety Report 21601656 (Version 2)
Quarter: 2023Q1

REPORT INFORMATION
  Report Type: Report from Study
  Country: US (occurrence: US)
  Receive Date: 20221116
  Receipt Date: 20230102
  Transmission Date: 20230418
  Serious: No
  Sender: FDA-Public Use
  Company Number: US-ABBVIE-4163458

PATIENT
  Age: 65 Year
  Sex: Male

DRUGS (2)
  1. HUMIRA [Suspect]
     Active Substance: ADALIMUMAB
     Indication: Rheumatoid arthritis
     Route: 058
     Dates: start: 20220228
  2. JANSSEN COVID-19 VACCINE [Concomitant]
     Active Substance: AD26.COV2.S
     Indication: COVID-19 immunisation
     Dosage: FREQUENCY: ONCE
     Route: 030

REACTIONS (2)
  - Pain in extremity [Recovered/Resolved]
  - Arthralgia [Unknown]

NARRATIVE: CASE EVENT DATE: 20221001
